FAERS Safety Report 6057642-X (Version None)
Quarter: 2009Q1

REPORT INFORMATION
  Report Type: 
  Country: None (occurrence: None)
  Receive Date: 20090129
  Receipt Date: 20090129
  Transmission Date: 20090719
  Serious: Yes (Other)
  Sender: FDA-Public Use
  Company Number: JP-ABBOTT-09P-087-0499452-00

PATIENT
  Sex: Female

DRUGS (5)
  1. KLARICID TABLETS [Suspect]
     Indication: DRUG USE FOR UNKNOWN INDICATION
     Route: 048
     Dates: start: 20071201
  2. KLARICID TABLETS [Suspect]
     Route: 048
     Dates: start: 20090119, end: 20090120
  3. MUCODYNE [Concomitant]
     Indication: BRONCHITIS
     Route: 048
     Dates: start: 20090119, end: 20090120
  4. LYSOZYME HYDROCHLORIDE [Concomitant]
     Indication: BRONCHITIS
     Route: 048
     Dates: start: 20090119, end: 20090120
  5. PRAVASTATIN SODIUM [Concomitant]
     Indication: HYPERLIPIDAEMIA
     Route: 048
     Dates: start: 20030101, end: 20090120

REACTIONS (6)
  - CHAPPED LIPS [None]
  - DIARRHOEA [None]
  - EYE PAIN [None]
  - MALAISE [None]
  - PARAESTHESIA [None]
  - VOMITING [None]
